FAERS Safety Report 5364116-8 (Version None)
Quarter: 2007Q2

REPORT INFORMATION
  Report Type: 
  Country: None (occurrence: None)
  Receive Date: 20070620
  Receipt Date: 20070606
  Transmission Date: 20071010
  Serious: Yes (Hospitalization)
  Sender: FDA-Public Use
  Company Number: US-SHR-US-2007-003913

PATIENT
  Age: 54 Year
  Sex: Male

DRUGS (2)
  1. BETASERON [Suspect]
     Indication: RELAPSING-REMITTING MULTIPLE SCLEROSIS
     Dosage: 8 MIU, EVERY 2D
     Route: 058
     Dates: start: 20061201, end: 20070129
  2. ASPIRIN [Concomitant]
     Dosage: 1 TAB(S), 1X/DAY
     Route: 048

REACTIONS (1)
  - MYOCARDIAL INFARCTION [None]
